FAERS Safety Report 10235503 (Version 1)
Quarter: 2014Q2

REPORT INFORMATION
  Report Type: Spontaneous
  Country: IT (occurrence: CH)
  Receive Date: 20140613
  Receipt Date: 20140613
  Transmission Date: 20141212
  Serious: Yes (Life-Threatening, Hospitalization, Disabling)
  Sender: FDA-Public Use
  Company Number: CH-FRI-1000068109

PATIENT
  Sex: Female

DRUGS (2)
  1. FOSFOMYCIN [Suspect]
     Route: 048
     Dates: start: 20140321, end: 20140322
  2. BACTRIM [Suspect]
     Dosage: 2 DF
     Route: 048
     Dates: start: 20140320, end: 20140321

REACTIONS (2)
  - Stevens-Johnson syndrome [Recovering/Resolving]
  - Tubulointerstitial nephritis [Unknown]
